FAERS Safety Report 18028096 (Version 2)
Quarter: 2020Q3

REPORT INFORMATION
  Report Type: Spontaneous
  Country: IN (occurrence: IN)
  Receive Date: 20200716
  Receipt Date: 20200724
  Transmission Date: 20201103
  Serious: Yes (Other)
  Sender: FDA-Public Use
  Company Number: IN-DRREDDYS-USA/IND/20/0125096

PATIENT
  Age: 45 Year
  Sex: Female

DRUGS (2)
  1. ZOLEDRONIC ACID INJECTION, 5 MG (BASE)/100 ML [Suspect]
     Active Substance: ZOLEDRONIC ACID
     Indication: FIBROUS DYSPLASIA OF BONE
     Dosage: TOTAL OF 60 DOSES OF ZOLEDRONIC ACID (CUMULATIVE DOSE: 300 MG) OVER FIVE YEARS
     Route: 065
  2. RISEDRONIC ACID [Suspect]
     Active Substance: RISEDRONIC ACID
     Indication: FIBROUS DYSPLASIA OF BONE
     Dosage: CUMULATIVE DOSE: MORE THAN 9000 MG
     Route: 048

REACTIONS (1)
  - Drug resistance [Unknown]
